FAERS Safety Report 8978436 (Version 1)
Quarter: 2012Q4

REPORT INFORMATION
  Report Type: 
  Country: US (occurrence: US)
  Receive Date: 20121220
  Receipt Date: 20121220
  Transmission Date: 20130627
  Serious: No
  Sender: FDA-Public Use
  Company Number: US-009507513-1212USA004658

PATIENT
  Age: 65 Year
  Sex: Male

DRUGS (1)
  1. CARBIDOPA (+) LEVODOPA [Suspect]
     Indication: PARKINSONISM
     Dosage: 900 mg, UNK
     Dates: start: 2010

REACTIONS (1)
  - Drug ineffective [Unknown]
